FAERS Safety Report 5707842-0 (Version None)
Quarter: 2008Q2

REPORT INFORMATION
  Report Type: 
  Country: None (occurrence: None)
  Receive Date: 20080417
  Receipt Date: 20080407
  Transmission Date: 20081010
  Serious: Yes (Disabling, Other)
  Sender: FDA-Public Use
  Company Number: US-JNJFOC-20071105031

PATIENT
  Sex: Male

DRUGS (5)
  1. REMICADE [Suspect]
     Indication: DRUG USE FOR UNKNOWN INDICATION
     Route: 042
  2. ATENOLOL [Concomitant]
  3. DILTIAZEM [Concomitant]
  4. LIPITOR [Concomitant]
  5. FOLIC ACID [Concomitant]

REACTIONS (3)
  - NEUROPATHY PERIPHERAL [None]
  - PARAESTHESIA [None]
  - RETINAL ISCHAEMIA [None]
